FAERS Safety Report 13445650 (Version 1)
Quarter: 2017Q2

REPORT INFORMATION
  Report Type: Spontaneous
  Country: US (occurrence: US)
  Receive Date: 20170415
  Receipt Date: 20170415
  Transmission Date: 20170830
  Serious: Yes (Death)
  Sender: FDA-Public Use
  Company Number: US-JNJFOC-20170413076

PATIENT
  Age: 24 Month
  Sex: Male
  Weight: 12.25 kg

DRUGS (1)
  1. DIPHENHYDRAMINE HYDROCHLORIDE. [Suspect]
     Active Substance: DIPHENHYDRAMINE HYDROCHLORIDE
     Indication: PRODUCT USED FOR UNKNOWN INDICATION
     Route: 048

REACTIONS (6)
  - Generalised tonic-clonic seizure [Fatal]
  - Cyanosis [Unknown]
  - Coma [Fatal]
  - Overdose [Fatal]
  - Mydriasis [Recovered/Resolved]
  - Hyperpyrexia [Fatal]
